FAERS Safety Report 13491112 (Version 1)
Quarter: 2017Q2

REPORT INFORMATION
  Report Type: Spontaneous
  Country: US (occurrence: US)
  Receive Date: 20170427
  Receipt Date: 20170427
  Transmission Date: 20170830
  Serious: No
  Sender: FDA-Public Use
  Company Number: US-LUPIN PHARMACEUTICALS INC.-2016-01948

PATIENT
  Sex: Female
  Weight: 68.4 kg

DRUGS (2)
  1. ZIPRASIDONE. [Suspect]
     Active Substance: ZIPRASIDONE
     Indication: PRODUCT USED FOR UNKNOWN INDICATION
     Dosage: UNK UNK,UNK,UNKNOWN
     Route: 065
  2. ZELDOX [Concomitant]
     Active Substance: ZIPRASIDONE
     Indication: PRODUCT USED FOR UNKNOWN INDICATION
     Dosage: EXTRA 20 MG IF NEEDED
     Route: 048

REACTIONS (1)
  - Drug ineffective [Unknown]
